FAERS Safety Report 6664450-5 (Version None)
Quarter: 2010Q2

REPORT INFORMATION
  Report Type: 
  Country: None (occurrence: None)
  Receive Date: 20100401
  Receipt Date: 20100331
  Transmission Date: 20101027
  Serious: Yes (Death, Other)
  Sender: FDA-Public Use
  Company Number: PHHY2010BR06204

PATIENT
  Sex: Female

DRUGS (2)
  1. EXJADE [Suspect]
     Indication: HAEMOLYTIC ANAEMIA
     Route: 048
  2. EXJADE [Suspect]
     Indication: HEREDITARY HAEMOCHROMATOSIS

REACTIONS (3)
  - HAEMOGLOBIN ABNORMAL [None]
  - MALAISE [None]
  - MYOCARDIAL INFARCTION [None]
